FAERS Safety Report 21949216 (Version 1)
Quarter: 2023Q1

REPORT INFORMATION
  Report Type: Spontaneous
  Country: US (occurrence: US)
  Receive Date: 20230203
  Receipt Date: 20230203
  Transmission Date: 20230418
  Serious: No
  Sender: FDA-Public Use
  Company Number: US-GSKCCFUS-Case-01612286_AE-91074

PATIENT
  Age: 77 Year
  Sex: Female

DRUGS (1)
  1. TRELEGY ELLIPTA [Interacting]
     Active Substance: FLUTICASONE FUROATE\UMECLIDINIUM BROMIDE\VILANTEROL TRIFENATATE
     Indication: Product used for unknown indication
     Dosage: UNK
     Dates: start: 20230125

REACTIONS (2)
  - Drug ineffective [Unknown]
  - Labelled drug-disease interaction issue [Unknown]

NARRATIVE: CASE EVENT DATE: 20230101
